FAERS Safety Report 19639946 (Version 1)
Quarter: 2021Q3

REPORT INFORMATION
  Report Type: Other
  Country: US (occurrence: US)
  Receive Date: 20210730
  Receipt Date: 20210730
  Transmission Date: 20211014
  Serious: Yes (Death)
  Sender: FDA-Public Use
  Company Number: US-ROCHE-2881556

PATIENT
  Age: 56 Year

DRUGS (2)
  1. OCRELIZUMAB. [Suspect]
     Active Substance: OCRELIZUMAB
     Dosage: OCRELIZUMAB 600 MG WAS ADMINISTERED INTRAVENOUSLY EVERY 6 MONTHS
     Route: 042
  2. OCRELIZUMAB. [Suspect]
     Active Substance: OCRELIZUMAB
     Indication: SECONDARY PROGRESSIVE MULTIPLE SCLEROSIS
     Dosage: FIRST COURSE INCLUDED TWO INFUSIONS OF OCRELIZUMAB 300 MG GIVEN 14 DAYS APART.
     Route: 042

REACTIONS (1)
  - Urosepsis [Fatal]
